FAERS Safety Report 20465494 (Version 7)
Quarter: 2022Q3

REPORT INFORMATION
  Report Type: Report from Study
  Country: US (occurrence: US)
  Receive Date: 20220212
  Receipt Date: 20220810
  Transmission Date: 20221026
  Serious: Yes (Other)
  Sender: FDA-Public Use
  Company Number: US-NOVARTISPH-NVSC2022US028748

PATIENT
  Age: 78 Year
  Sex: Male

DRUGS (4)
  1. ENTRESTO [Suspect]
     Active Substance: SACUBITRIL\VALSARTAN
     Indication: Product used for unknown indication
     Dosage: 1 DOSAGE FORM, BID (24/26 MG)
     Route: 048
     Dates: start: 20220207
  2. ENTRESTO [Suspect]
     Active Substance: SACUBITRIL\VALSARTAN
     Dosage: 0.5 DOSAGE FORM, BID (24/26 MG)
     Route: 048
     Dates: start: 202205
  3. ENALAPRIL [Suspect]
     Active Substance: ENALAPRIL
     Indication: Product used for unknown indication
     Dosage: UNK
     Route: 065
  4. ELIQUIS [Concomitant]
     Active Substance: APIXABAN
     Indication: Product used for unknown indication
     Dosage: UNK
     Route: 065

REACTIONS (19)
  - Colon cancer [Unknown]
  - Discomfort [Unknown]
  - Back pain [Not Recovered/Not Resolved]
  - Cardiac disorder [Unknown]
  - Cognitive disorder [Unknown]
  - Gait disturbance [Unknown]
  - Dysstasia [Unknown]
  - Blood magnesium decreased [Unknown]
  - Contusion [Unknown]
  - Eating disorder [Unknown]
  - Fatigue [Unknown]
  - Hypotension [Unknown]
  - Mastication disorder [Unknown]
  - Tooth loss [Unknown]
  - Hernia [Unknown]
  - Hypertension [Unknown]
  - Weight decreased [Unknown]
  - Prescribed underdose [Unknown]
  - Wrong technique in product usage process [Unknown]

NARRATIVE: CASE EVENT DATE: 20220401
